FAERS Safety Report 9816879 (Version 1)
Quarter: 2014Q1

REPORT INFORMATION
  Report Type: Spontaneous
  Country: US (occurrence: US)
  Receive Date: 20140114
  Receipt Date: 20140114
  Transmission Date: 20141002
  Serious: No
  Sender: FDA-Public Use
  Company Number: US-BAUSCH-BL-2013-006788

PATIENT
  Sex: Male

DRUGS (2)
  1. LOTEMAX (LOTEPREDNOL ETABONATE OPHTHALMIC GEL 0.5%) [Suspect]
     Indication: POSTOPERATIVE CARE
     Dosage: UNKNOWN DOSE DOSE; OPHTHALMIC
     Route: 047
  2. PROLENSA (BROMFENAC OPHTHALMIC SOLUTION) 0.07% [Suspect]
     Indication: POSTOPERATIVE CARE
     Dosage: UNKNOWN DOSE; OPHTHALMIC
     Route: 047

REACTIONS (1)
  - Drug ineffective [Unknown]
